FAERS Safety Report 5037628-4 (Version None)
Quarter: 2006Q2

REPORT INFORMATION
  Report Type: 
  Country: None (occurrence: None)
  Receive Date: 20060627
  Receipt Date: 20060627
  Transmission Date: 20061013
  Serious: No
  Sender: FDA-Public Use
  Company Number: None

PATIENT
  Sex: Female
  Weight: 63.5036 kg

DRUGS (2)
  1. LORTAB [Suspect]
     Indication: HYDROCEPHALUS
     Dosage: ONE OR TWO Q 4 PO PRN UP TO 8/DAY PO
     Route: 048
     Dates: start: 20031201
  2. LORTAB [Suspect]
     Indication: OSTEOARTHRITIS
     Dosage: ONE OR TWO Q 4 PO PRN UP TO 8/DAY PO
     Route: 048
     Dates: start: 20031201

REACTIONS (2)
  - DRUG INEFFECTIVE [None]
  - THERAPEUTIC RESPONSE UNEXPECTED WITH DRUG SUBSTITUTION [None]
